FAERS Safety Report 20533928 (Version 1)
Quarter: 2022Q1

REPORT INFORMATION
  Report Type: Spontaneous
  Country: DE (occurrence: DE)
  Receive Date: 20220301
  Receipt Date: 20220301
  Transmission Date: 20220423
  Serious: Yes (Other)
  Sender: FDA-Public Use
  Company Number: DE-PRINSTON PHARMACEUTICAL INC.-2022PRN00048

PATIENT
  Age: 30 Year
  Sex: Female

DRUGS (2)
  1. VORICONAZOLE [Suspect]
     Active Substance: VORICONAZOLE
     Indication: Bronchopulmonary aspergillosis
     Dosage: UNK
     Route: 065
  2. VORICONAZOLE [Suspect]
     Active Substance: VORICONAZOLE
     Indication: Cerebral aspergillosis

REACTIONS (4)
  - Synovitis [Recovered/Resolved]
  - Enthesopathy [Recovered/Resolved]
  - Periostitis [Recovered/Resolved]
  - Toxicity to various agents [Recovered/Resolved]
